FAERS Safety Report 8408541-7 (Version None)
Quarter: 2012Q2

REPORT INFORMATION
  Report Type: 
  Country: None (occurrence: None)
  Receive Date: 20120604
  Receipt Date: 20120530
  Transmission Date: 20120825
  Serious: No
  Sender: FDA-Public Use
  Company Number: US-PFIZER INC-2012131309

PATIENT
  Sex: Male
  Weight: 68.027 kg

DRUGS (5)
  1. LIPITOR [Suspect]
     Indication: BLOOD CHOLESTEROL INCREASED
     Dosage: 20 OR 40 MG, DAILY
  2. GLUCOSAMINE HYDROCHLORIDE/CHONDROITIN SULFATE [Concomitant]
     Indication: ARTHRITIS
     Dosage: 1500/1200 MG, 2 TABLETS DAILY
     Dates: end: 20120515
  3. OMEPRAZOLE [Concomitant]
     Indication: HIATUS HERNIA
     Dosage: 20 MG, ONCE DAILY
     Dates: end: 20120515
  4. METOPROLOL [Concomitant]
     Indication: HEART RATE IRREGULAR
     Dosage: 12.5 MG, DAILY
     Dates: end: 20120515
  5. LIPITOR [Suspect]
     Dosage: 40 MG, ONCE DAILY
     Dates: start: 20120401, end: 20120515

REACTIONS (1)
  - RASH [None]
